FAERS Safety Report 14230058 (Version 8)
Quarter: 2018Q2

REPORT INFORMATION
  Report Type: Spontaneous
  Country: DE (occurrence: DE)
  Receive Date: 20171128
  Receipt Date: 20180406
  Transmission Date: 20180711
  Serious: Yes (Hospitalization, Other)
  Sender: FDA-Public Use
  Company Number: DE-BAYER-2017-221941

PATIENT
  Age: 76 Year
  Sex: Female
  Weight: 71 kg

DRUGS (5)
  1. CIPROFLOXACIN. [Suspect]
     Active Substance: CIPROFLOXACIN
     Indication: URINARY TRACT INFECTION
     Dosage: 500 MG, UNK
     Dates: start: 20130614
  2. ZOLPIDEM [Concomitant]
     Active Substance: ZOLPIDEM\ZOLPIDEM TARTRATE
     Dosage: 5 MG, QD, NOCTE
  3. CIPROFLOXACIN. [Suspect]
     Active Substance: CIPROFLOXACIN
     Indication: PNEUMONIA
     Dosage: UNK
     Dates: start: 20170514
  4. MIRTAZAPIN [Concomitant]
     Active Substance: MIRTAZAPINE
     Dosage: 15 MG, QD, NOCTE
     Dates: start: 2010
  5. PANTOPRAZOLE [Concomitant]
     Active Substance: PANTOPRAZOLE
     Dosage: 40 MG, QD

REACTIONS (32)
  - Chest discomfort [Recovering/Resolving]
  - Intestinal mucosal atrophy [Recovering/Resolving]
  - Nausea [Recovered/Resolved]
  - Weight decreased [Recovered/Resolved]
  - Abdominal distension [Recovering/Resolving]
  - Vomiting [Unknown]
  - Hypotonia [Recovering/Resolving]
  - Iritis [Recovering/Resolving]
  - Nausea [Recovered/Resolved]
  - Pain [Recovered/Resolved]
  - Decreased appetite [Recovered/Resolved]
  - Abdominal pain upper [Recovered/Resolved]
  - Asthenia [Unknown]
  - Diarrhoea [None]
  - Urinary tract infection [Recovering/Resolving]
  - Social avoidant behaviour [Recovering/Resolving]
  - Adjustment disorder [Recovering/Resolving]
  - Nausea [Unknown]
  - Panic attack [Unknown]
  - Pyrexia [Recovering/Resolving]
  - Cough [Unknown]
  - Anxiety [Recovered/Resolved]
  - Abdominal discomfort [Unknown]
  - Feeling cold [Recovering/Resolving]
  - Hyperhidrosis [Unknown]
  - Fear of death [Recovering/Resolving]
  - Insomnia [Recovered/Resolved]
  - Quality of life decreased [Unknown]
  - Sleep disorder [Recovering/Resolving]
  - Depression [Recovered/Resolved]
  - Hyperhidrosis [Recovering/Resolving]
  - Pneumonia [None]

NARRATIVE: CASE EVENT DATE: 201705
